FAERS Safety Report 10576013 (Version 1)
Quarter: 2014Q4

REPORT INFORMATION
  Report Type: Spontaneous
  Country: US (occurrence: None)
  Receive Date: 20141110
  Receipt Date: 20141110
  Transmission Date: 20150529
  Serious: No
  Sender: FDA-Public Use
  Company Number: None

PATIENT
  Age: 56 Year
  Sex: Female
  Weight: 61.24 kg

DRUGS (1)
  1. GABAPENTIN. [Suspect]
     Active Substance: GABAPENTIN
     Indication: FIBROMYALGIA
     Dosage: 1 PER DAY FOR A WEEK, ONCE DAILY, TAKEN BY MOUTH
     Route: 048

REACTIONS (4)
  - Somnolence [None]
  - Drug effect variable [None]
  - Insomnia [None]
  - Product quality issue [None]

NARRATIVE: CASE EVENT DATE: 20141108
